APPROVED DRUG PRODUCT: PARICALCITOL
Active Ingredient: PARICALCITOL
Strength: 4MCG
Dosage Form/Route: CAPSULE;ORAL
Application: A207672 | Product #003 | TE Code: AB
Applicant: AUROBINDO PHARMA LTD
Approved: Jan 14, 2016 | RLD: No | RS: No | Type: RX